FAERS Safety Report 6993183-0 (Version None)
Quarter: 2010Q3

REPORT INFORMATION
  Report Type: 
  Country: None (occurrence: None)
  Receive Date: 20100917
  Receipt Date: 20090721
  Transmission Date: 20110219
  Serious: Yes (Other)
  Sender: FDA-Public Use
  Company Number: US-ASTRAZENECA-2007UW05107

PATIENT
  Age: 12513 Day
  Sex: Female

DRUGS (3)
  1. SEROQUEL [Suspect]
     Dosage: 25 -300 MG
     Route: 048
     Dates: start: 20050829
  2. LEXAPRO [Concomitant]
     Dosage: 20 MG 1.5 TAB Q AM
     Route: 048
     Dates: start: 20050829
  3. XANAX [Concomitant]
     Dates: start: 20050829

REACTIONS (3)
  - DIABETES MELLITUS [None]
  - KETOACIDOSIS [None]
  - PANCREATITIS [None]
